FAERS Safety Report 14568759 (Version 2)
Quarter: 2018Q2

REPORT INFORMATION
  Report Type: Spontaneous
  Country: US (occurrence: US)
  Receive Date: 20180223
  Receipt Date: 20180423
  Transmission Date: 20180711
  Serious: Yes (Other)
  Sender: FDA-Public Use
  Company Number: US-009507513-1802USA011897

PATIENT
  Sex: Female
  Weight: 57.2 kg

DRUGS (1)
  1. FOSAMAX [Suspect]
     Active Substance: ALENDRONATE SODIUM
     Indication: OSTEOPENIA
     Dosage: UNK
     Route: 048
     Dates: start: 2002, end: 201204

REACTIONS (7)
  - Sleep apnoea syndrome [Unknown]
  - Bladder cancer [Unknown]
  - Hypercholesterolaemia [Unknown]
  - Hysterosalpingo-oophorectomy [Unknown]
  - Colon adenoma [Unknown]
  - Spinal operation [Unknown]
  - Vitamin D deficiency [Unknown]

NARRATIVE: CASE EVENT DATE: 2004
